FAERS Safety Report 6068792-6 (Version None)
Quarter: 2009Q1

REPORT INFORMATION
  Report Type: 
  Country: None (occurrence: None)
  Receive Date: 20090206
  Receipt Date: 20090127
  Transmission Date: 20090719
  Serious: Yes (Life-Threatening, Other)
  Sender: FDA-Public Use
  Company Number: AT-JNJFOC-20080405937

PATIENT

DRUGS (1)
  1. INFLIXIMAB [Suspect]
     Indication: SLE ARTHRITIS
     Dosage: 16 INFUSIONS, DATES UNSPECIFIED
     Route: 042

REACTIONS (1)
  - CENTRAL NERVOUS SYSTEM LYMPHOMA [None]
